FAERS Safety Report 24027966 (Version 1)
Quarter: 2024Q2

REPORT INFORMATION
  Report Type: Spontaneous
  Country: US (occurrence: US)
  Receive Date: 20240628
  Receipt Date: 20240628
  Transmission Date: 20240716
  Serious: No
  Sender: FDA-Public Use
  Company Number: US-Accord-387742

PATIENT
  Age: 43 Year
  Sex: Male

DRUGS (1)
  1. CLONAZEPAM [Suspect]
     Active Substance: CLONAZEPAM
     Indication: Autonomic nervous system imbalance
     Dosage: 1/2 TABLET DAILY

REACTIONS (5)
  - Lethargy [Unknown]
  - Product taste abnormal [Unknown]
  - Sedation [Unknown]
  - Off label use [Unknown]
  - Wrong technique in product usage process [Unknown]

NARRATIVE: CASE EVENT DATE: 20231017
